FAERS Safety Report 18501642 (Version 1)
Quarter: 2020Q4

REPORT INFORMATION
  Report Type: Other
  Country: IR (occurrence: IR)
  Receive Date: 20201113
  Receipt Date: 20201113
  Transmission Date: 20210114
  Serious: Yes (Death, Other)
  Sender: FDA-Public Use
  Company Number: IR-ROCHE-2712911

PATIENT
  Sex: Female
  Weight: 1.2 kg

DRUGS (5)
  1. ENOXAPARIN [Concomitant]
     Active Substance: ENOXAPARIN
  2. INSULIN [Concomitant]
     Active Substance: INSULIN NOS
  3. ASPIRIN. [Concomitant]
     Active Substance: ASPIRIN
  4. OSELTAMIVIR [Suspect]
     Active Substance: OSELTAMIVIR
     Indication: PRODUCT USED FOR UNKNOWN INDICATION
     Route: 064
  5. HYDROXYCHLOROQUINE [Concomitant]
     Active Substance: HYDROXYCHLOROQUINE
     Indication: COVID-19

REACTIONS (7)
  - Abdominal distension [Fatal]
  - Premature delivery [Unknown]
  - Low birth weight baby [Unknown]
  - Anuria [Unknown]
  - Foetal exposure during pregnancy [Unknown]
  - Necrotising colitis [Fatal]
  - Generalised oedema [Unknown]
